FAERS Safety Report 10671833 (Version 1)
Quarter: 2014Q4

REPORT INFORMATION
  Report Type: Spontaneous
  Country: GB (occurrence: GB)
  Receive Date: 20141223
  Receipt Date: 20141223
  Transmission Date: 20150529
  Serious: Yes (Other)
  Sender: FDA-Public Use
  Company Number: GB-ASPEN PHARMA TRADING LIMITED US-AG-2014-008391

PATIENT

DRUGS (1)
  1. TIOGUANINE [Suspect]
     Active Substance: THIOGUANINE ANHYDROUS
     Indication: LYMPHOCYTIC LEUKAEMIA
     Route: 065

REACTIONS (1)
  - Astrocytoma [Unknown]
